FAERS Safety Report 10215179 (Version 1)
Quarter: 2014Q2

REPORT INFORMATION
  Report Type: Spontaneous
  Country: IT (occurrence: IT)
  Receive Date: 20140603
  Receipt Date: 20140603
  Transmission Date: 20141212
  Serious: Yes (Other)
  Sender: FDA-Public Use
  Company Number: PHHY2014IT065625

PATIENT
  Sex: Male

DRUGS (2)
  1. AMOXICILLIN TRIHYDRATE [Suspect]
     Dosage: 1 G, ONCE/SINGLE
     Route: 048
     Dates: start: 20140308, end: 20140308
  2. PANTORC [Concomitant]

REACTIONS (6)
  - Presyncope [Recovered/Resolved]
  - Pruritus [Recovered/Resolved]
  - Urticaria [Recovered/Resolved]
  - Hypotension [Recovered/Resolved]
  - Lip oedema [Recovered/Resolved]
  - Peripheral swelling [Recovered/Resolved]
